FAERS Safety Report 8243706-9 (Version None)
Quarter: 2012Q1

REPORT INFORMATION
  Report Type: 
  Country: None (occurrence: None)
  Receive Date: 20120329
  Receipt Date: 20110223
  Transmission Date: 20120608
  Serious: No
  Sender: FDA-Public Use
  Company Number: US-MYLANLABS-2011S1003651

PATIENT
  Sex: Male

DRUGS (2)
  1. EMSAM [Suspect]
     Indication: DEPRESSION
     Route: 062
     Dates: start: 20101201
  2. LITHIUM CARBONATE [Suspect]

REACTIONS (4)
  - DYSPHONIA [None]
  - PULMONARY OEDEMA [None]
  - MYOCARDIAL OEDEMA [None]
  - OEDEMA PERIPHERAL [None]
